FAERS Safety Report 13445664 (Version 1)
Quarter: 2017Q2

REPORT INFORMATION
  Report Type: Spontaneous
  Country: GB (occurrence: GB)
  Receive Date: 20170415
  Receipt Date: 20170415
  Transmission Date: 20170830
  Serious: Yes (Other)
  Sender: FDA-Public Use
  Company Number: GB-MYLANLABS-2017M1022985

PATIENT

DRUGS (8)
  1. CITALOPRAM [Concomitant]
     Active Substance: CITALOPRAM HYDROBROMIDE
     Dates: start: 20150515
  2. DEPO-MEDRONE [Concomitant]
     Active Substance: METHYLPREDNISOLONE
     Dosage: IMMEDIATELY.
     Dates: start: 20170201, end: 20170201
  3. RAMIPRIL. [Concomitant]
     Active Substance: RAMIPRIL
     Dosage: AT NIGHT.
     Dates: start: 20160705
  4. ZOLMITRIPTAN. [Concomitant]
     Active Substance: ZOLMITRIPTAN
     Dosage: AS DIRECTED.
     Dates: start: 20150515
  5. TRAMADOL. [Suspect]
     Active Substance: TRAMADOL
     Dates: start: 20170329
  6. LIDOCAINE. [Concomitant]
     Active Substance: LIDOCAINE
     Dosage: IMMEDIATELY.
     Dates: start: 20170201, end: 20170201
  7. PARACETAMOL [Concomitant]
     Active Substance: ACETAMINOPHEN
     Dosage: TAKE 1 OR 2 TABLETS 4 TIMES A DAY.
     Dates: start: 20170329
  8. CODEINE PHOSPHATE [Concomitant]
     Active Substance: CODEINE PHOSPHATE
     Dosage: TAKE ONE OR TWO TABLETS 4 TIMES A DAY.
     Dates: start: 20170310, end: 20170317

REACTIONS (1)
  - Depression [Recovered/Resolved]

NARRATIVE: CASE EVENT DATE: 20170329
